FAERS Safety Report 24456720 (Version 1)
Quarter: 2024Q4

REPORT INFORMATION
  Report Type: Spontaneous
  Country: FR (occurrence: FR)
  Receive Date: 20241017
  Receipt Date: 20241017
  Transmission Date: 20250115
  Serious: Yes (Other)
  Sender: CELLTRION
  Company Number: FR-ABBVIE-5721106

PATIENT

DRUGS (2)
  1. ADALIMUMAB [Suspect]
     Active Substance: ADALIMUMAB
     Indication: Product used for unknown indication
     Route: 058
  2. RINVOQ [Suspect]
     Active Substance: UPADACITINIB
     Indication: Product used for unknown indication
     Dosage: LAST ADMIN DATE: 2024; STRENGTH: 45 MG
     Route: 048
     Dates: start: 20240307

REACTIONS (4)
  - Colitis [Unknown]
  - Sinusitis [Unknown]
  - Conjunctivitis bacterial [Unknown]
  - Treatment failure [Unknown]

NARRATIVE: CASE EVENT DATE: 20240301
